FAERS Safety Report 7156862-0 (Version None)
Quarter: 2010Q4

REPORT INFORMATION
  Report Type: 
  Country: None (occurrence: None)
  Receive Date: 20101214
  Receipt Date: 20101201
  Transmission Date: 20110411
  Serious: Yes (Other)
  Sender: FDA-Public Use
  Company Number: PHHY2010US25993

PATIENT
  Sex: Male

DRUGS (2)
  1. EXJADE [Suspect]
     Indication: NEOPLASM
     Dosage: 1625 MG, QD
     Route: 048
  2. EXJADE [Suspect]
     Dosage: UNK

REACTIONS (2)
  - EYE DISORDER [None]
  - EYE INFECTION [None]
